FAERS Safety Report 21747541 (Version 1)
Quarter: 2022Q4

REPORT INFORMATION
  Report Type: Spontaneous
  Country: US (occurrence: US)
  Receive Date: 20221219
  Receipt Date: 20221219
  Transmission Date: 20230113
  Serious: Yes (Hospitalization)
  Sender: FDA-Public Use
  Company Number: US-BAYER-2022P028473

PATIENT
  Age: 53 Year
  Sex: Female

DRUGS (9)
  1. ADEMPAS [Suspect]
     Active Substance: RIOCIGUAT
     Indication: Pulmonary arterial hypertension
     Dosage: 1 MG, TID
     Dates: start: 20211018
  2. AMBRISENTAN [Concomitant]
     Active Substance: AMBRISENTAN
     Indication: Pulmonary hypertension
  3. FUROSEMIDE [Concomitant]
     Active Substance: FUROSEMIDE
  4. METFORMIN [Concomitant]
     Active Substance: METFORMIN HYDROCHLORIDE
  5. SIMVASTATIN [Concomitant]
     Active Substance: SIMVASTATIN
  6. HUMULIN N [Concomitant]
     Active Substance: INSULIN HUMAN
  7. LOSARTAN [Concomitant]
     Active Substance: LOSARTAN
  8. GLIPIZIDE [Concomitant]
     Active Substance: GLIPIZIDE
  9. ORENITRAM [Concomitant]
     Active Substance: TREPROSTINIL
     Indication: Pulmonary hypertension

REACTIONS (2)
  - Cellulitis [Recovering/Resolving]
  - Upper respiratory tract infection [Recovering/Resolving]

NARRATIVE: CASE EVENT DATE: 20221116
